FAERS Safety Report 9372514 (Version 1)
Quarter: 2013Q2

REPORT INFORMATION
  Report Type: Spontaneous
  Country: US (occurrence: None)
  Receive Date: 20130610
  Receipt Date: 20130610
  Transmission Date: 20140414
  Serious: Yes (Other)
  Sender: FDA-Public Use
  Company Number: 2013036287

PATIENT
  Age: 78 Year
  Sex: Male
  Weight: 78.47 kg

DRUGS (10)
  1. ZEMAIRA (ALPHA-1 PROTEINASE INHIBITOR (HUMAN)) [Suspect]
     Indication: ALPHA-1 ANTI-TRYPSIN DEFICIENCY
     Dosage: 1X/7 DAYS, 6.3 ML/MIN. INTRAVENOUS (NOT OTHERWISE SPECIFIED)
     Route: 042
     Dates: start: 20130517, end: 20130517
  2. HEPARIN (HEPARIN) [Concomitant]
  3. SODIUM CHLORIDE [Concomitant]
  4. EPI-PEN (EPINEPHRINE HYDROCHLORIDE [Concomitant]
  5. SIMVASTATIN (SIMVASTATIN) [Concomitant]
  6. ADVAIR (SERETIDE /01420901/) [Concomitant]
  7. ALBUTEROL (SALBUTAMOL) [Concomitant]
  8. SPIRVIRA (TITROPIUM BROMIDE) [Concomitant]
  9. ANTIOXIDANT (BIO ANTIOXIDANT) [Concomitant]
  10. PROAIR (SALBUTAMOL SULFATE) [Concomitant]

REACTIONS (1)
  - Lower respiratory tract infection [None]
